FAERS Safety Report 10177697 (Version 1)
Quarter: 2014Q2

REPORT INFORMATION
  Report Type: Spontaneous
  Country: US (occurrence: US)
  Receive Date: 20140516
  Receipt Date: 20140516
  Transmission Date: 20141212
  Serious: No
  Sender: FDA-Public Use
  Company Number: US-SA-2014SA018027

PATIENT
  Sex: Male

DRUGS (4)
  1. APIDRA SOLOSTAR [Suspect]
     Indication: PRODUCT USED FOR UNKNOWN INDICATION
     Route: 065
  2. LANTUS SOLOSTAR [Suspect]
     Indication: PRODUCT USED FOR UNKNOWN INDICATION
     Route: 065
  3. SOLOSTAR [Concomitant]
  4. SOLOSTAR [Concomitant]

REACTIONS (2)
  - Injection site haemorrhage [Unknown]
  - Drug dispensing error [Unknown]
